FAERS Safety Report 24350441 (Version 2)
Quarter: 2024Q4

REPORT INFORMATION
  Report Type: Spontaneous
  Country: US (occurrence: US)
  Receive Date: 20240923
  Receipt Date: 20241113
  Transmission Date: 20250114
  Serious: No
  Sender: AMGEN
  Company Number: US-AMGEN-USASP2024185007

PATIENT
  Age: 28 Year
  Sex: Female
  Weight: 61.23 kg

DRUGS (3)
  1. NEULASTA [Suspect]
     Active Substance: PEGFILGRASTIM
     Indication: White blood cell count decreased
     Dosage: UNK
     Route: 065
  2. NEULASTA [Suspect]
     Active Substance: PEGFILGRASTIM
     Indication: Breast cancer female
  3. NEULASTA [Suspect]
     Active Substance: PEGFILGRASTIM
     Indication: Metastases to bone

REACTIONS (2)
  - Product preparation error [Unknown]
  - Accidental exposure to product [Unknown]

NARRATIVE: CASE EVENT DATE: 20240913
